FAERS Safety Report 14152892 (Version 1)
Quarter: 2017Q4

REPORT INFORMATION
  Report Type: Spontaneous
  Country: FR (occurrence: FR)
  Receive Date: 20171102
  Receipt Date: 20171102
  Transmission Date: 20180321
  Serious: Yes (Life-Threatening, Hospitalization, Other)
  Sender: FDA-Public Use
  Company Number: FR-GILEAD-2017-0301410

PATIENT
  Age: 70 Year
  Sex: Male
  Weight: 91 kg

DRUGS (16)
  1. XATRAL                             /00975301/ [Concomitant]
  2. COAPROVEL [Concomitant]
     Active Substance: HYDROCHLOROTHIAZIDE\IRBESARTAN
  3. CORTANCYL [Concomitant]
     Active Substance: PREDNISONE
  4. VIREAD [Suspect]
     Active Substance: TENOFOVIR DISOPROXIL FUMARATE
     Indication: HEPATITIS B
     Dosage: 245 MG, QD
     Route: 048
     Dates: start: 2012, end: 20170929
  5. CELLCEPT [Concomitant]
     Active Substance: MYCOPHENOLATE MOFETIL\MYCOPHENOLATE MOFETIL HYDROCHLORIDE
     Dosage: 750 MG, BID
     Route: 065
     Dates: start: 20171014
  6. KARDEGIC [Concomitant]
     Active Substance: ASPIRIN DL-LYSINE
  7. TAHOR [Concomitant]
     Active Substance: ATORVASTATIN CALCIUM
  8. NEURONTIN [Concomitant]
     Active Substance: GABAPENTIN
  9. BACTRIM [Concomitant]
     Active Substance: SULFAMETHOXAZOLE\TRIMETHOPRIM
     Dosage: 4800 MG, QD
     Route: 065
     Dates: start: 20170904, end: 20170925
  10. LEVOTHYROXINE. [Concomitant]
     Active Substance: LEVOTHYROXINE
  11. CALCIPARINE [Concomitant]
     Active Substance: HEPARIN CALCIUM
  12. WELLVONE [Concomitant]
     Active Substance: ATOVAQUONE
  13. INSULIN [Concomitant]
     Active Substance: INSULIN NOS
  14. LANSOPRAZOLE. [Concomitant]
     Active Substance: LANSOPRAZOLE
  15. FOLIC ACID. [Concomitant]
     Active Substance: FOLIC ACID
  16. BACTRIM [Concomitant]
     Active Substance: SULFAMETHOXAZOLE\TRIMETHOPRIM
     Dosage: 400 MG, QD
     Route: 065
     Dates: start: 20170926, end: 20170928

REACTIONS (2)
  - Acute kidney injury [Recovered/Resolved]
  - Renal tubular disorder [Unknown]

NARRATIVE: CASE EVENT DATE: 20170926
